FAERS Safety Report 6830378-0 (Version None)
Quarter: 2010Q3

REPORT INFORMATION
  Report Type: 
  Country: None (occurrence: None)
  Receive Date: 20100712
  Receipt Date: 20100630
  Transmission Date: 20110219
  Serious: Yes (Hospitalization)
  Sender: FDA-Public Use
  Company Number: US-BIOGENIDEC-2010BI022414

PATIENT
  Age: 56 Year
  Sex: Male
  Weight: 81 kg

DRUGS (16)
  1. TYSABRI [Suspect]
     Indication: MULTIPLE SCLEROSIS
     Route: 042
     Dates: start: 20071031
  2. RITALIN [Concomitant]
     Indication: FATIGUE
  3. PROVIGIL [Concomitant]
     Indication: FATIGUE
  4. TERAZOSIN HCL [Concomitant]
     Indication: PROSTATOMEGALY
  5. OXYBUTYNIN CHLORIDE [Concomitant]
     Indication: BLADDER DISORDER
  6. OMEPRAZOLE [Concomitant]
     Indication: GASTROOESOPHAGEAL REFLUX DISEASE
  7. LORATADINE [Concomitant]
     Indication: HYPERTENSION
  8. ENALAPRIL MALEATE [Concomitant]
     Indication: HYPERTENSION
  9. IRON SULFATETHIAMIN COMPOUND TAB [Concomitant]
     Indication: BLOOD IRON DECREASED
  10. LIDODERM [Concomitant]
     Indication: BACK PAIN
     Route: 062
  11. HYDROCODONE BITARTRATE [Concomitant]
     Indication: PAIN
  12. GABAPENTIN [Concomitant]
     Indication: NEURALGIA
  13. DOCUSATE SODIUM [Concomitant]
     Indication: CONSTIPATION
  14. BACLOFEN [Concomitant]
     Indication: MUSCLE SPASMS
  15. ATENOLOL [Concomitant]
     Indication: HYPERTENSION
  16. FLUNISOLIDE [Concomitant]
     Indication: SEASONAL ALLERGY

REACTIONS (4)
  - BACK PAIN [None]
  - FALL [None]
  - MULTIPLE SCLEROSIS RELAPSE [None]
  - MUSCULAR WEAKNESS [None]
